FAERS Safety Report 5519358-5 (Version None)
Quarter: 2007Q4

REPORT INFORMATION
  Report Type: 
  Country: None (occurrence: None)
  Receive Date: 20071116
  Receipt Date: 20071109
  Transmission Date: 20080405
  Serious: Yes (Death)
  Sender: FDA-Public Use
  Company Number: ES-GENENTECH-251265

PATIENT
  Age: 72 Year
  Sex: Male

DRUGS (5)
  1. RITUXIMAB [Suspect]
     Indication: EPIDERMOLYSIS
     Dosage: 350 MG/M2, 1/WEEK
  2. PREDNISONE TAB [Concomitant]
     Indication: EPIDERMOLYSIS
  3. DAPSONE [Concomitant]
     Indication: EPIDERMOLYSIS
  4. IMMUNE GLOBULIN (HUMAN) [Concomitant]
     Indication: EPIDERMOLYSIS
  5. AZATHIOPRINE [Concomitant]
     Indication: EPIDERMOLYSIS

REACTIONS (1)
  - LUNG INFECTION PSEUDOMONAL [None]
